FAERS Safety Report 6896200-1 (Version None)
Quarter: 2010Q3

REPORT INFORMATION
  Report Type: 
  Country: None (occurrence: None)
  Receive Date: 20100802
  Receipt Date: 20100726
  Transmission Date: 20110219
  Serious: Yes (Congenital Anomaly)
  Sender: FDA-Public Use
  Company Number: A0872415A

PATIENT
  Sex: Male

DRUGS (9)
  1. COMBIVIR [Suspect]
     Indication: ANTIVIRAL TREATMENT
     Dates: start: 20021205, end: 20051028
  2. SUSTIVA [Suspect]
     Indication: ANTIVIRAL TREATMENT
     Dates: start: 20021205, end: 20050111
  3. VIRACEPT [Suspect]
     Indication: ANTIVIRAL TREATMENT
     Dates: start: 20050516, end: 20051028
  4. VIRAMUNE [Suspect]
     Indication: ANTIVIRAL TREATMENT
     Dates: start: 20050415, end: 20050429
  5. DIPHENHYDRAMINE [Concomitant]
  6. ESTRADIOL [Concomitant]
  7. FERROUS SULFATE [Concomitant]
  8. FOLIC ACID [Concomitant]
  9. PARACETAMOL [Concomitant]

REACTIONS (2)
  - DRUG EXPOSURE DURING PREGNANCY [None]
  - HORNER'S SYNDROME [None]
